FAERS Safety Report 7793047-9 (Version None)
Quarter: 2011Q3

REPORT INFORMATION
  Report Type: 
  Country: None (occurrence: None)
  Receive Date: 20110929
  Receipt Date: 20110916
  Transmission Date: 20111222
  Serious: Yes (Life-Threatening, Other)
  Sender: FDA-Public Use
  Company Number: LTI2011A00173

PATIENT
  Age: 68 Year
  Sex: Male

DRUGS (3)
  1. PIOGLITAZONE HYDROCHLORIDE AND METFORMIN HYDROCHLORIDE [Suspect]
     Indication: TYPE 2 DIABETES MELLITUS
     Dosage: 2 TAB. (1 TAB., 2 IN 1 D)
     Route: 048
     Dates: start: 20090901, end: 20110401
  2. JANUVIA [Suspect]
     Indication: TYPE 2 DIABETES MELLITUS
     Dosage: 1 DF (100 MG, 1 IN 1 D)
     Route: 048
     Dates: start: 20090301
  3. DIAMICRON (GLICLAZIDE) [Suspect]
     Indication: TYPE 2 DIABETES MELLITUS
     Dosage: 2 DF (30 MG, 3 IN 1 D)
     Route: 048
     Dates: start: 20000101

REACTIONS (2)
  - OEDEMA PERIPHERAL [None]
  - BLADDER CANCER STAGE II [None]
